FAERS Safety Report 13689130 (Version 1)
Quarter: 2017Q2

REPORT INFORMATION
  Report Type: Spontaneous
  Country: IT (occurrence: IT)
  Receive Date: 20170626
  Receipt Date: 20170626
  Transmission Date: 20170830
  Serious: Yes (Hospitalization)
  Sender: FDA-Public Use
  Company Number: IT-AUROBINDO-AUR-APL-2017-36117

PATIENT
  Age: 48 Year
  Sex: Female

DRUGS (3)
  1. LORAZEPAM TABLETS [Suspect]
     Active Substance: LORAZEPAM
     Indication: DRUG USE DISORDER
     Dosage: 10 MG, TOTAL
     Route: 048
  2. LITHIUM. [Suspect]
     Active Substance: LITHIUM
     Indication: DRUG USE DISORDER
     Dosage: 415 MG, TOTAL
     Route: 048
  3. QUETIAPINE FILM-COATED TABLET [Suspect]
     Active Substance: QUETIAPINE
     Indication: DRUG USE DISORDER
     Dosage: 1000 MG, TOTAL
     Route: 048

REACTIONS (3)
  - Drug use disorder [Unknown]
  - Sopor [Unknown]
  - Poisoning [Unknown]

NARRATIVE: CASE EVENT DATE: 20170524
